FAERS Safety Report 8596799 (Version 5)
Quarter: 2014Q1

REPORT INFORMATION
  Report Type: Spontaneous
  Country: US (occurrence: US)
  Receive Date: 20120605
  Receipt Date: 20140131
  Transmission Date: 20141002
  Serious: Yes (Hospitalization, Other)
  Sender: FDA-Public Use
  Company Number: US-ASTRAZENECA-2012SE35479

PATIENT
  Age: 57 Year
  Sex: Female
  Weight: 70.3 kg

DRUGS (22)
  1. NEXIUM [Suspect]
     Indication: DYSPEPSIA
     Dosage: TWICE A DAY
     Route: 048
     Dates: start: 2002, end: 2006
  2. TUMS [Concomitant]
     Dosage: AS NEEDED
  3. ROLAIDS [Concomitant]
     Dosage: AS NEEDED
  4. ZANTAC [Concomitant]
     Dosage: AS NEEDED
     Dates: start: 2000
  5. PEPTO-BISMOL [Concomitant]
     Dosage: AS NEEDED
  6. VITAMIN A [Concomitant]
  7. VITAMIN D [Concomitant]
  8. VITAMIN C [Concomitant]
  9. HYDROCODONE [Concomitant]
     Dates: start: 20020105
  10. FLUVOXAMINE [Concomitant]
  11. CLONAZEPAM [Concomitant]
     Dates: start: 20010117
  12. CELEXA [Concomitant]
  13. SEROQUEL [Concomitant]
     Dates: start: 20020117
  14. LIPITOR [Concomitant]
     Dates: start: 20020131
  15. ACIPHEX [Concomitant]
     Dates: start: 20020131
  16. ALBUTEROL [Concomitant]
  17. ACTONEL [Concomitant]
  18. PREVACID [Concomitant]
     Dates: start: 20020514
  19. RISPERDAL [Concomitant]
  20. SINGULAIR [Concomitant]
  21. PREDNISONE [Concomitant]
     Dates: start: 20021015
  22. OMEPRAZOLE [Concomitant]

REACTIONS (22)
  - Spinal fracture [Unknown]
  - Fall [Unknown]
  - Renal disorder [Unknown]
  - Chronic obstructive pulmonary disease [Unknown]
  - Convulsion [Unknown]
  - Cerebrovascular accident [Unknown]
  - Nephrolithiasis [Unknown]
  - Gastrointestinal disorder [Unknown]
  - Joint dislocation [Unknown]
  - Osteoporosis [Unknown]
  - Multiple fractures [Unknown]
  - Rib fracture [Unknown]
  - Wrist fracture [Unknown]
  - Hand fracture [Unknown]
  - Foot fracture [Unknown]
  - Fractured coccyx [Unknown]
  - Bone disorder [Unknown]
  - Calcium deficiency [Unknown]
  - Arthritis [Unknown]
  - Rheumatoid arthritis [Unknown]
  - Vitamin D deficiency [Unknown]
  - Depression [Unknown]
